FAERS Safety Report 5061085-5 (Version None)
Quarter: 2006Q3

REPORT INFORMATION
  Report Type: 
  Country: None (occurrence: None)
  Receive Date: 20060720
  Receipt Date: 20060710
  Transmission Date: 20061208
  Serious: Yes (Hospitalization, Other)
  Sender: FDA-Public Use
  Company Number: 2006086099

PATIENT
  Sex: Male

DRUGS (19)
  1. LYRICA [Suspect]
     Indication: DRUG USE FOR UNKNOWN INDICATION
     Dosage: 150 MG (75 MG, 2 IN 1 D)
  2. FLUTICASONE PROPIONATE [Concomitant]
  3. ALBUTEROL [Concomitant]
  4. CINACALCET HYDROCHLORIDE [Concomitant]
  5. DOCUSATE [Concomitant]
  6. ALL OTHER THERAPEUTIC PRODUCTS [Concomitant]
  7. FUROSEMIDE [Concomitant]
  8. GANCICLOVIR [Concomitant]
  9. GUAIFENESIN [Concomitant]
  10. LANSOPRAZOLE [Concomitant]
  11. MAGNESIUM SULFATE [Concomitant]
  12. METOPROLOL [Concomitant]
  13. NEPHROCAPS (FOLIC ACID, VITAMINS NOS) [Concomitant]
  14. PREDNISONE [Concomitant]
  15. SENNA [Concomitant]
  16. SODIUM BICARBONATE [Concomitant]
  17. SODIUM POLYSTYRENE SULFONATE [Concomitant]
  18. TACROLIMUS [Concomitant]
  19. HEPARIN [Concomitant]

REACTIONS (1)
  - PULMONARY OEDEMA [None]
